FAERS Safety Report 9657211 (Version 5)
Quarter: 2014Q1

REPORT INFORMATION
  Report Type: Spontaneous
  Country: US (occurrence: US)
  Receive Date: 20131030
  Receipt Date: 20140123
  Transmission Date: 20141002
  Serious: No
  Sender: FDA-Public Use
  Company Number: US-PFIZER INC-2013305039

PATIENT
  Age: 37 Year
  Sex: Female
  Weight: 43.99 kg

DRUGS (7)
  1. ZYVOX [Suspect]
     Indication: PNEUMONIA
     Dosage: 600 MG, 2X/DAY (600 MG,EVERY 12 HOURS)
     Route: 048
     Dates: start: 20131003, end: 201310
  2. ZYVOX [Suspect]
     Indication: STAPHYLOCOCCAL INFECTION
  3. AMOXICILLIN [Concomitant]
     Dosage: UNK
     Dates: start: 2013, end: 2013
  4. XANAX [Concomitant]
     Dosage: UNK
  5. AVELOX [Concomitant]
     Dosage: UNK
  6. AUGMENTIN [Concomitant]
     Dosage: UNK
  7. AZITHROMYCIN [Concomitant]

REACTIONS (3)
  - Dyspnoea [Unknown]
  - Painful respiration [Unknown]
  - Cough [Unknown]
